FAERS Safety Report 5950323-X (Version None)
Quarter: 2008Q4

REPORT INFORMATION
  Report Type: 
  Country: None (occurrence: None)
  Receive Date: 20081112
  Receipt Date: 20081029
  Transmission Date: 20090506
  Serious: Yes (Other)
  Sender: FDA-Public Use
  Company Number: PHHY2008JP27236

PATIENT
  Sex: Female

DRUGS (3)
  1. VOLTAREN [Suspect]
     Route: 054
  2. ETIZOLAM [Concomitant]
     Route: 048
  3. NORVASC [Concomitant]
     Dosage: 5 MG
     Route: 048

REACTIONS (1)
  - FAECES DISCOLOURED [None]
